FAERS Safety Report 6332608 (Version 7)
Quarter: 2019Q1

REPORT INFORMATION
  Report Type: Spontaneous
  Country: GB (occurrence: GB)
  Receive Date: 20070613
  Receipt Date: 20190122
  Transmission Date: 20190418
  Serious: Yes (Hospitalization)
  Sender: FDA-Public Use
  Company Number: GB-PFIZER INC-2007046714

PATIENT
  Age: 81 Year
  Sex: Male

DRUGS (4)
  1. OCTREOTIDE. [Concomitant]
     Active Substance: OCTREOTIDE
     Indication: VIPOMA
     Dosage: 100 UG, 2X/DAY
     Route: 058
     Dates: start: 20061007
  2. PARACETAMOL [Concomitant]
     Active Substance: ACETAMINOPHEN
     Indication: PAIN
     Dosage: 1 G, 4X/DAY
     Route: 048
  3. FLUCONAZOLE. [Suspect]
     Active Substance: FLUCONAZOLE
     Indication: OESOPHAGITIS
     Dosage: 50 MG, DAILY
     Route: 048
     Dates: start: 20061026, end: 20061120
  4. SIMVASTATIN. [Interacting]
     Active Substance: SIMVASTATIN
     Indication: PROPHYLAXIS
     Dosage: 40 MG, DAILY STARTED LONG TERM
     Route: 048
     Dates: start: 20061026, end: 20061119

REACTIONS (3)
  - Drug interaction [Unknown]
  - Renal impairment [Recovering/Resolving]
  - Rhabdomyolysis [Recovering/Resolving]

NARRATIVE: CASE EVENT DATE: 2006
